FAERS Safety Report 5361770-1 (Version None)
Quarter: 2007Q2

REPORT INFORMATION
  Report Type: 
  Country: None (occurrence: None)
  Receive Date: 20070619
  Receipt Date: 20070607
  Transmission Date: 20071010
  Serious: Yes (Hospitalization)
  Sender: FDA-Public Use
  Company Number: PA-JNJFOC-20070603617

PATIENT
  Sex: Female
  Weight: 85.73 kg

DRUGS (4)
  1. BLINDED; PALIPERIDONE [Suspect]
     Route: 048
  2. BLINDED; PALIPERIDONE [Suspect]
     Indication: BIPOLAR I DISORDER
     Route: 048
  3. OLANZAPINE [Suspect]
     Indication: BIPOLAR I DISORDER
     Route: 048
  4. PLACEBO [Suspect]
     Indication: BIPOLAR I DISORDER
     Route: 048

REACTIONS (1)
  - MANIA [None]
